FAERS Safety Report 8222785-9 (Version None)
Quarter: 2012Q1

REPORT INFORMATION
  Report Type: 
  Country: None (occurrence: None)
  Receive Date: 20120315
  Receipt Date: 20120309
  Transmission Date: 20120608
  Serious: Yes (Hospitalization)
  Sender: FDA-Public Use
  Company Number: WAES 1112DEU00078

PATIENT
  Age: 41 Year
  Sex: Male
  Weight: 71.6683 kg

DRUGS (2)
  1. EMTRICITABINE/TENOFOVIR DISOPROXIL FUMARATE [Concomitant]
  2. TAB RALTEGRAVIR POTASSIUM 400 MG [Suspect]
     Indication: HIV INFECTION
     Dosage: 400 MG/BID/PO
     Route: 048
     Dates: start: 20100901

REACTIONS (4)
  - HYDRONEPHROSIS [None]
  - URINARY TRACT INFECTION STAPHYLOCOCCAL [None]
  - POLLAKIURIA [None]
  - CALCULUS URETERIC [None]
